FAERS Safety Report 21455953 (Version 1)
Quarter: 2022Q4

REPORT INFORMATION
  Report Type: Spontaneous
  Country: US (occurrence: US)
  Receive Date: 20221014
  Receipt Date: 20221014
  Transmission Date: 20230112
  Serious: Yes (Other)
  Sender: FDA-Public Use
  Company Number: US-APOTEX-2022AP014127

PATIENT
  Age: 10 Year
  Sex: Male

DRUGS (3)
  1. TRANEXAMIC ACID [Suspect]
     Active Substance: TRANEXAMIC ACID
     Indication: Procoagulant therapy
     Dosage: 30 MILLIGRAM/KILOGRAM BOLUS
     Route: 042
  2. TRANEXAMIC ACID [Suspect]
     Active Substance: TRANEXAMIC ACID
     Dosage: 15 MILLIGRAM/KILOGRAM PER HOURS
     Route: 042
  3. FEIBA [Suspect]
     Active Substance: ANTI-INHIBITOR COAGULANT COMPLEX
     Indication: Haemorrhage
     Dosage: 10 U/KG (2 SUBSEQUENT DOSES OF 5 U/KG)
     Route: 065

REACTIONS (5)
  - Aortic thrombosis [Recovered/Resolved]
  - Peripheral artery occlusion [Recovered/Resolved]
  - Subclavian artery occlusion [Recovered/Resolved]
  - Carotid artery thrombosis [Recovered/Resolved]
  - Peripheral artery thrombosis [Recovered/Resolved]
